FAERS Safety Report 13498893 (Version 1)
Quarter: 2017Q2

REPORT INFORMATION
  Report Type: Spontaneous
  Country: US (occurrence: US)
  Receive Date: 20170430
  Receipt Date: 20170430
  Transmission Date: 20170830
  Serious: Yes (Other)
  Sender: FDA-Public Use
  Company Number: None

PATIENT
  Age: 40 Year
  Sex: Female
  Weight: 67.5 kg

DRUGS (2)
  1. CITALOPRAM [Concomitant]
     Active Substance: CITALOPRAM HYDROBROMIDE
  2. ALLEGRA [Suspect]
     Active Substance: FEXOFENADINE HYDROCHLORIDE
     Indication: MULTIPLE ALLERGIES
     Dosage: ?          QUANTITY:1 TABLET(S);?
     Route: 048
     Dates: start: 20170427, end: 20170428

REACTIONS (12)
  - Dizziness [None]
  - Loss of consciousness [None]
  - Abdominal pain upper [None]
  - Diarrhoea [None]
  - Dysstasia [None]
  - Palpitations [None]
  - Nausea [None]
  - Insomnia [None]
  - Hyperhidrosis [None]
  - Vomiting [None]
  - Asthenia [None]
  - Muscle twitching [None]

NARRATIVE: CASE EVENT DATE: 20170427
